FAERS Safety Report 22083796 (Version 1)
Quarter: 2023Q1

REPORT INFORMATION
  Report Type: Spontaneous
  Country: JP (occurrence: JP)
  Receive Date: 20230310
  Receipt Date: 20230310
  Transmission Date: 20230418
  Serious: Yes (Other)
  Sender: FDA-Public Use
  Company Number: JP-VIATRISJAPAN-2023M1024166AA

PATIENT
  Age: 85 Year
  Sex: Female

DRUGS (1)
  1. LYRICA [Suspect]
     Active Substance: PREGABALIN
     Indication: Neuralgia
     Dosage: 25 MILLIGRAM, BID
     Route: 048

REACTIONS (3)
  - Renal impairment [Unknown]
  - Somnolence [Unknown]
  - Inappropriate schedule of product administration [Unknown]

NARRATIVE: CASE EVENT DATE: 20230303
